FAERS Safety Report 6278049-6 (Version None)
Quarter: 2009Q3

REPORT INFORMATION
  Report Type: 
  Country: None (occurrence: None)
  Receive Date: 20090722
  Receipt Date: 20090713
  Transmission Date: 20100115
  Serious: Yes (Other)
  Sender: FDA-Public Use
  Company Number: PHHY2009MX28795

PATIENT
  Sex: Female

DRUGS (3)
  1. DIOVAN HCT [Suspect]
     Indication: HYPERTENSION
     Dosage: 1 TABLET (80/12.5 MG) PER DAY
     Route: 048
     Dates: start: 20071219, end: 20090710
  2. SERMION [Concomitant]
     Indication: SENILE DEMENTIA
     Dosage: 1 DF, TID
  3. ASPIRIN [Concomitant]
     Dosage: 1 TABLET PER DAY

REACTIONS (4)
  - ANAEMIA [None]
  - DIZZINESS [None]
  - HYPOTENSION [None]
  - WRONG DRUG ADMINISTERED [None]
